FAERS Safety Report 4795820-8 (Version None)
Quarter: 2005Q4

REPORT INFORMATION
  Report Type: 
  Country: None (occurrence: None)
  Receive Date: 20051007
  Receipt Date: 20050925
  Transmission Date: 20060501
  Serious: Yes (Other)
  Sender: FDA-Public Use
  Company Number: 2005132385

PATIENT
  Age: 33 Year
  Sex: Male
  Weight: 72.5755 kg

DRUGS (1)
  1. DRAMAMINE [Suspect]
     Dosage: 16 TABS ONCE; ORAL
     Route: 048
     Dates: start: 20050925, end: 20050925

REACTIONS (3)
  - HALLUCINATION [None]
  - INTENTIONAL DRUG MISUSE [None]
  - SPEECH DISORDER [None]
